FAERS Safety Report 21142000 (Version 2)
Quarter: 2022Q3

REPORT INFORMATION
  Report Type: Spontaneous
  Country: US (occurrence: US)
  Receive Date: 20220728
  Receipt Date: 20220804
  Transmission Date: 20221027
  Serious: Yes (Disabling, Other)
  Sender: FDA-Public Use
  Company Number: US-Atnahs Limited-ATNAHS20220706330

PATIENT
  Age: 67 Year
  Sex: Male
  Weight: 72.640 kg

DRUGS (4)
  1. VALIUM [Suspect]
     Active Substance: DIAZEPAM
     Indication: Sleep disorder
  2. OCREVUS [Suspect]
     Active Substance: OCRELIZUMAB
     Indication: Primary progressive multiple sclerosis
     Dosage: UNKNOWN DATE ^2017 OR 2018^ APPROXIMATELY ^2 YEARS AGO, COULD HAVE BEEN MORE^. ?HER LAST INFUSION...
     Route: 050
  3. BACLOFEN [Concomitant]
     Active Substance: BACLOFEN
     Indication: Product used for unknown indication
  4. ELIQUIS [Concomitant]
     Active Substance: APIXABAN
     Indication: Anticoagulant therapy

REACTIONS (7)
  - SARS-CoV-2 antibody test negative [Unknown]
  - COVID-19 [Unknown]
  - Deep vein thrombosis [Unknown]
  - Intentional product use issue [Unknown]
  - Off label use [Unknown]
  - Multiple sclerosis [Unknown]
  - Pain in extremity [Unknown]

NARRATIVE: CASE EVENT DATE: 20201101
